FAERS Safety Report 7573575-1 (Version None)
Quarter: 2011Q2

REPORT INFORMATION
  Report Type: 
  Country: None (occurrence: None)
  Receive Date: 20110627
  Receipt Date: 20110615
  Transmission Date: 20111010
  Serious: Yes (Other)
  Sender: FDA-Public Use
  Company Number: IT-US-EMD SERONO, INC.-7065338

PATIENT
  Sex: Female

DRUGS (1)
  1. GONAL-F [Suspect]
     Indication: OVULATION INDUCTION
     Route: 058
     Dates: start: 20110415, end: 20110427

REACTIONS (5)
  - HYPERPYREXIA [None]
  - MALAISE [None]
  - WHITE BLOOD CELL COUNT INCREASED [None]
  - VOMITING [None]
  - CHILLS [None]
